FAERS Safety Report 13887100 (Version 1)
Quarter: 2017Q3

REPORT INFORMATION
  Report Type: Report from Study
  Country: US (occurrence: US)
  Receive Date: 20170821
  Receipt Date: 20170821
  Transmission Date: 20171127
  Serious: Yes (Hospitalization)
  Sender: FDA-Public Use
  Company Number: US-BAYER-2017-155451

PATIENT
  Age: 74 Year
  Sex: Male

DRUGS (1)
  1. STIVARGA [Suspect]
     Active Substance: REGORAFENIB
     Indication: METASTASIS
     Dosage: 160 MG DAILY
     Route: 048

REACTIONS (5)
  - Ocular icterus [None]
  - Blood bilirubin increased [None]
  - Ammonia increased [None]
  - Fatigue [None]
  - Yellow skin [None]

NARRATIVE: CASE EVENT DATE: 20170716
